FAERS Safety Report 24225417 (Version 4)
Quarter: 2024Q4

REPORT INFORMATION
  Report Type: Spontaneous
  Country: JP (occurrence: JP)
  Receive Date: 20240820
  Receipt Date: 20241101
  Transmission Date: 20250115
  Serious: Yes (Hospitalization)
  Sender: NOVO NORDISK
  Company Number: JP-NOVOPROD-1268827

PATIENT
  Age: 70 Year
  Sex: Female
  Weight: 48.8 kg

DRUGS (6)
  1. TRESIBA [Suspect]
     Active Substance: INSULIN DEGLUDEC
     Indication: Type 1 diabetes mellitus
     Dosage: UNK
     Route: 058
  2. NOVORAPID [Suspect]
     Active Substance: INSULIN ASPART
     Indication: Type 1 diabetes mellitus
     Dosage: UNK
     Route: 058
  3. NOVORAPID [Suspect]
     Active Substance: INSULIN ASPART
     Dosage: 8-8-13 (29 IU)
     Route: 058
     Dates: start: 20240807
  4. NOVORAPID [Suspect]
     Active Substance: INSULIN ASPART
     Dosage: 15-15 UNITS (30 IU)
     Route: 058
     Dates: start: 20240808
  5. NOVORAPID [Suspect]
     Active Substance: INSULIN ASPART
     Dosage: 6 UNITS ,8 UNITS (14 IU)
     Route: 058
     Dates: start: 20240805
  6. NOVORAPID [Suspect]
     Active Substance: INSULIN ASPART
     Dosage: 8-8-8 UNITS (24 IU)
     Route: 058
     Dates: start: 20240806

REACTIONS (3)
  - Urinary tract infection [Recovering/Resolving]
  - Diabetic ketoacidosis [Recovering/Resolving]
  - Therapeutic response decreased [Unknown]

NARRATIVE: CASE EVENT DATE: 20240803
